FAERS Safety Report 25155441 (Version 1)
Quarter: 2025Q2

REPORT INFORMATION
  Report Type: Spontaneous
  Country: US (occurrence: None)
  Receive Date: 20250402
  Receipt Date: 20250402
  Transmission Date: 20250717
  Serious: Yes (Other)
  Sender: FDA-CTU
  Company Number: None

PATIENT
  Age: 69 Year
  Sex: Male
  Weight: 56.25 kg

DRUGS (4)
  1. DULCOLAX STOOL SOFTENER [Suspect]
     Active Substance: DOCUSATE SODIUM
     Indication: Constipation
     Dosage: OTHER QUANTITY : 1 TABLET(S);?FREQUENCY : DAILY;?
     Route: 048
     Dates: start: 20250108, end: 20250109
  2. TEA [Concomitant]
     Active Substance: TEA LEAF
  3. Tumeric + Ginger gummies [Concomitant]
  4. VITAMIN C [Concomitant]
     Active Substance: ASCORBIC ACID

REACTIONS (5)
  - Anorectal discomfort [None]
  - Abdominal discomfort [None]
  - Proctalgia [None]
  - Urinary retention [None]
  - Device occlusion [None]

NARRATIVE: CASE EVENT DATE: 20250109
